FAERS Safety Report 20509477 (Version 1)
Quarter: 2022Q1

REPORT INFORMATION
  Report Type: Report from Study
  Country: KR (occurrence: None)
  Receive Date: 20220224
  Receipt Date: 20220224
  Transmission Date: 20220423
  Serious: Yes (Other)
  Sender: FDA-Public Use
  Company Number: KR-Merck Healthcare KGaA-9301149

PATIENT
  Sex: Female

DRUGS (1)
  1. REBIF [Suspect]
     Active Substance: INTERFERON BETA-1A
     Indication: Myelin oligodendrocyte glycoprotein antibody-associated disease
     Dates: start: 20171117

REACTIONS (2)
  - Myelin oligodendrocyte glycoprotein antibody-associated disease [Unknown]
  - Product prescribing error [Unknown]
